FAERS Safety Report 19144490 (Version 2)
Quarter: 2021Q2

REPORT INFORMATION
  Report Type: Spontaneous
  Country: JP (occurrence: JP)
  Receive Date: 20210416
  Receipt Date: 20210423
  Transmission Date: 20210717
  Serious: Yes (Death, Other)
  Sender: FDA-Public Use
  Company Number: JP-ABBVIE-21P-087-3862822-00

PATIENT
  Age: 75 Year
  Sex: Male

DRUGS (1)
  1. LEUPLIN [Suspect]
     Active Substance: LEUPROLIDE ACETATE
     Indication: PROSTATE CANCER
     Route: 058

REACTIONS (10)
  - Renal failure [Fatal]
  - Meningitis bacterial [Unknown]
  - Altered state of consciousness [Unknown]
  - Diabetes mellitus inadequate control [Unknown]
  - Respiratory failure [Fatal]
  - Myelitis [Unknown]
  - Spinal cord abscess [Unknown]
  - Septic shock [Unknown]
  - Quadriplegia [Unknown]
  - Back pain [Unknown]
